FAERS Safety Report 5015437-X (Version None)
Quarter: 2006Q2

REPORT INFORMATION
  Report Type: 
  Country: None (occurrence: None)
  Receive Date: 20060601
  Receipt Date: 20060424
  Transmission Date: 20061013
  Serious: Yes (Hospitalization, Other)
  Sender: FDA-Public Use
  Company Number: PHEH2006US05370

PATIENT
  Age: 40 Year
  Sex: Female

DRUGS (7)
  1. SEROQUEL [Concomitant]
     Dosage: 300 MG 3 PM AND 9 PM
     Route: 048
     Dates: start: 20000309
  2. LITHIUM CARBONATE [Concomitant]
     Indication: AGITATION
     Dosage: 300 MG, TID
     Route: 048
     Dates: start: 19900607
  3. VALPROIC ACID [Concomitant]
     Indication: PRURITUS
     Dosage: 250 MG, QD
     Dates: start: 20050311, end: 20060502
  4. ALPRAZOLAM [Concomitant]
     Indication: ANXIETY
     Dosage: 0.05 MG, BID
     Route: 048
     Dates: start: 19951207
  5. TRIFLUPROMAZINE [Concomitant]
  6. CLOZAPINE [Suspect]
     Indication: SCHIZOPHRENIA
     Dosage: UNK, UNK
     Dates: start: 20050701
  7. CLOZARIL [Suspect]
     Indication: SCHIZOPHRENIA
     Dosage: 450 MG, QD
     Route: 048
     Dates: start: 19910101, end: 20050701

REACTIONS (7)
  - HAEMOGLOBIN DECREASED [None]
  - KIDNEY INFECTION [None]
  - NEPHRECTOMY [None]
  - PYELONEPHRITIS ACUTE [None]
  - SCHIZOPHRENIA [None]
  - WEIGHT INCREASED [None]
  - WHITE BLOOD CELL COUNT INCREASED [None]
